FAERS Safety Report 22294343 (Version 2)
Quarter: 2023Q2

REPORT INFORMATION
  Report Type: Report from Study
  Country: CA (occurrence: CA)
  Receive Date: 20230508
  Receipt Date: 20230627
  Transmission Date: 20230722
  Serious: Yes (Other)
  Sender: FDA-Public Use
  Company Number: CA-AMRYT PHARMACEUTICALS DAC-AEGR004606

PATIENT

DRUGS (34)
  1. JUXTAPID [Suspect]
     Active Substance: LOMITAPIDE MESYLATE
     Indication: Type IIa hyperlipidaemia
     Dosage: 5 MG, QD
     Route: 048
     Dates: start: 20180326, end: 20180409
  2. JUXTAPID [Suspect]
     Active Substance: LOMITAPIDE MESYLATE
     Dosage: 5 MG, QOD
     Route: 048
     Dates: start: 20180413, end: 20180502
  3. JUXTAPID [Suspect]
     Active Substance: LOMITAPIDE MESYLATE
     Dosage: 5 MG, 2 DAYS/3
     Route: 048
     Dates: start: 20180503, end: 20191201
  4. JUXTAPID [Suspect]
     Active Substance: LOMITAPIDE MESYLATE
     Dosage: 5 MILLIGRAM, 2 DAYS/3
     Dates: start: 20191210, end: 20200131
  5. JUXTAPID [Suspect]
     Active Substance: LOMITAPIDE MESYLATE
     Dosage: 5 MILLIGRAM, 2 DAYS/3
     Route: 048
     Dates: start: 20200219
  6. ASPIRIN [Concomitant]
     Active Substance: ASPIRIN
     Indication: Cardiac disorder
     Dosage: 80 MG, QD
     Dates: start: 2003
  7. ATORVASTATIN [Concomitant]
     Active Substance: ATORVASTATIN
     Indication: Type IIa hyperlipidaemia
     Dosage: 80 MG, QD
     Route: 048
     Dates: start: 2010
  8. EVOLOCUMAB [Concomitant]
     Active Substance: EVOLOCUMAB
     Indication: Type IIa hyperlipidaemia
     Dosage: 140 MG, Q2W
     Route: 058
     Dates: start: 20170716
  9. EZETIMIBE [Concomitant]
     Active Substance: EZETIMIBE
     Indication: Type IIa hyperlipidaemia
     Dosage: 10 MG, QD
     Dates: start: 201102
  10. OMEGA 3-6-9                        /01333901/ [Concomitant]
     Indication: Supplementation therapy
     Dosage: 1 DF, QD
     Route: 048
     Dates: start: 20180326
  11. OMEGA 3-6-9                        /01333901/ [Concomitant]
     Dosage: 1 DOSAGE FORM, QD
     Route: 048
     Dates: start: 20191210
  12. TELMISARTAN [Concomitant]
     Active Substance: TELMISARTAN
     Indication: Hypertension
     Dosage: 80 MG, QD
     Route: 048
     Dates: start: 2011
  13. ERGOCALCIFEROL [Concomitant]
     Active Substance: ERGOCALCIFEROL
     Indication: Supplementation therapy
     Dosage: 400 IU INTERNATIONAL UNIT(S), QD
     Dates: start: 20170326
  14. CLOBETASOL [Concomitant]
     Active Substance: CLOBETASOL
     Indication: Pruritus
     Dosage: 1 DOSAGE FORM, PRN
     Route: 061
     Dates: start: 201912, end: 202002
  15. CLOBETASOL [Concomitant]
     Active Substance: CLOBETASOL
     Indication: Dry skin
  16. VITAMIN E [Concomitant]
     Active Substance: .ALPHA.-TOCOPHEROL
     Indication: Supplementation therapy
     Dosage: 400 IU INTERNATIONAL UNIT(S), QD
     Route: 048
     Dates: start: 20191210
  17. VITAMIN E [Concomitant]
     Active Substance: .ALPHA.-TOCOPHEROL
     Dosage: 400 IU INTERNATIONAL UNIT(S), QD
     Route: 048
  18. ASPIRIN [Concomitant]
     Active Substance: ASPIRIN
     Indication: Cardiac disorder
     Dosage: 80 MILLIGRAM, QD
     Route: 048
     Dates: start: 2003
  19. BISOPROLOL [Concomitant]
     Active Substance: BISOPROLOL
     Indication: Atrial fibrillation
     Dosage: 2.5 MILLIGRAM, QD
     Dates: start: 20200717, end: 20200720
  20. BISOPROLOL [Concomitant]
     Active Substance: BISOPROLOL
     Dosage: 5 MILLIGRAM, QD
     Route: 048
     Dates: start: 20200721, end: 20200922
  21. BISOPROLOL [Concomitant]
     Active Substance: BISOPROLOL
     Dosage: 7.5 MILLIGRAM, QD
     Route: 048
     Dates: start: 20200923
  22. BISOPROLOL [Concomitant]
     Active Substance: BISOPROLOL
     Dosage: 10 MILLIGRAM, QD
     Route: 048
     Dates: start: 20210407
  23. COVID-19 VACCINE [Concomitant]
     Indication: Prophylaxis
     Dosage: 0.5 MILLIGRAM, QD
     Route: 030
     Dates: start: 20210421, end: 20210421
  24. COVID-19 VACCINE [Concomitant]
     Dosage: 0.5 MILLIGRAM, QD
     Route: 030
     Dates: start: 20210621, end: 20210621
  25. COVID-19 VACCINE [Concomitant]
     Dosage: 0.5 MILLIGRAM, QD
     Route: 030
     Dates: start: 20220614, end: 20220614
  26. COVID-19 VACCINE [Concomitant]
     Dosage: 0.5 MILLIGRAM, QD
     Route: 030
     Dates: start: 20220708, end: 20220708
  27. ELIQUIS [Concomitant]
     Active Substance: APIXABAN
     Indication: Atrial fibrillation
     Dosage: 5 MILLIGRAM, QD
     Route: 048
     Dates: start: 20200707
  28. EVINACUMAB [Concomitant]
     Active Substance: EVINACUMAB
     Indication: Type IIa hyperlipidaemia
     Dosage: 140 MG,  Q2W
     Route: 042
  29. EVINACUMAB [Concomitant]
     Active Substance: EVINACUMAB
     Dosage: 15 MG/KG, QAM
     Route: 042
     Dates: start: 20220210, end: 20220210
  30. EVINACUMAB [Concomitant]
     Active Substance: EVINACUMAB
     Dosage: 15 MG/KF QAM
     Route: 042
     Dates: start: 20220811, end: 20220811
  31. METHOCARBAMOL [Concomitant]
     Active Substance: METHOCARBAMOL
     Indication: Back pain
     Dosage: 800 MILLIGRAM, QID
     Route: 048
     Dates: start: 20200212, end: 20200215
  32. SHINGRIX [Concomitant]
     Active Substance: RECOMBINANT VARICELLA ZOSTER VIRUS (VZV) GLYCOPROTEIN E
     Indication: Prophylaxis
     Dosage: 1 DOSAGE FORM, QD
     Route: 030
     Dates: start: 20220517, end: 20220517
  33. SHINGRIX [Concomitant]
     Active Substance: RECOMBINANT VARICELLA ZOSTER VIRUS (VZV) GLYCOPROTEIN E
     Dosage: 1 DOSAGE FORM, QD
     Route: 030
     Dates: start: 20220616, end: 20220616
  34. TARO TESTOSTERONE [TESTOSTERONE] [Concomitant]
     Indication: Andropause
     Dosage: 5 GRAM, QD
     Route: 048
     Dates: start: 20200929

REACTIONS (1)
  - Non-alcoholic fatty liver [Unknown]

NARRATIVE: CASE EVENT DATE: 20190828
